FAERS Safety Report 24983991 (Version 1)
Quarter: 2025Q1

REPORT INFORMATION
  Report Type: Spontaneous
  Country: US (occurrence: US)
  Receive Date: 20250219
  Receipt Date: 20250219
  Transmission Date: 20250408
  Serious: Yes (Hospitalization, Other)
  Sender: ASTELLAS
  Company Number: US-ASTELLAS-2025-AER-008374

PATIENT
  Age: 27 Year
  Sex: Female

DRUGS (9)
  1. TACROLIMUS [Interacting]
     Active Substance: TACROLIMUS
     Indication: Renal transplant
     Dosage: (0.1MG/KG/DAY), GOAL TACROLIMUS LEVEL OF 4-6 NG/ML
     Route: 065
  2. TACROLIMUS [Interacting]
     Active Substance: TACROLIMUS
     Route: 065
  3. RITONAVIR [Interacting]
     Active Substance: RITONAVIR
     Indication: HIV infection
     Route: 065
  4. RITONAVIR [Interacting]
     Active Substance: RITONAVIR
     Route: 065
  5. RIFAMPIN [Interacting]
     Active Substance: RIFAMPIN
     Indication: Drug metabolising enzyme increased
     Route: 048
  6. AZATHIOPRINE [Concomitant]
     Active Substance: AZATHIOPRINE
     Indication: Renal transplant
     Route: 065
  7. BETAMETHASONE [Concomitant]
     Active Substance: BETAMETHASONE
     Indication: Maternal therapy to enhance foetal lung maturity
     Route: 065
  8. MAGNESIUM SULFATE [Concomitant]
     Active Substance: MAGNESIUM SULFATE
     Indication: Prophylaxis
     Route: 065
  9. MAGNESIUM SULFATE [Concomitant]
     Active Substance: MAGNESIUM SULFATE
     Indication: Nervous system disorder prophylaxis

REACTIONS (9)
  - Toxicity to various agents [Recovering/Resolving]
  - HIV infection [Unknown]
  - Abdominal pain upper [Recovered/Resolved]
  - Disease recurrence [Recovered/Resolved]
  - Hypertension [Unknown]
  - Renal impairment [Recovering/Resolving]
  - Maternal exposure during pregnancy [Unknown]
  - Drug interaction [Unknown]
  - Drug interaction [Unknown]
